FAERS Safety Report 9226316 (Version 1)
Quarter: 2013Q2

REPORT INFORMATION
  Report Type: Spontaneous
  Country: TR (occurrence: TR)
  Receive Date: 20130411
  Receipt Date: 20130411
  Transmission Date: 20140414
  Serious: Yes (Hospitalization, Congenital Anomaly)
  Sender: FDA-Public Use
  Company Number: PHHY2011TR73101

PATIENT
  Sex: Male
  Weight: 2.2 kg

DRUGS (1)
  1. VALPROIC ACID [Suspect]
     Dosage: (MATERNAL DOSE 1000 MG/DAY)
     Route: 064

REACTIONS (17)
  - Foetal anticonvulsant syndrome [Unknown]
  - Congenital cardiovascular anomaly [Unknown]
  - Retrognathia [Unknown]
  - Aplasia [Unknown]
  - Cardiac murmur [Unknown]
  - Prominent epicanthal folds [Unknown]
  - Head circumference abnormal [Unknown]
  - Low set ears [Unknown]
  - Hypertelorism of orbit [Unknown]
  - Wrist deformity [Unknown]
  - Hand deformity [Unknown]
  - Atrial septal defect [Unknown]
  - Patent ductus arteriosus [Unknown]
  - Hypothyroidism [Recovering/Resolving]
  - Neonatal respiratory distress syndrome [Recovering/Resolving]
  - Use of accessory respiratory muscles [Recovering/Resolving]
  - Foetal exposure during pregnancy [Unknown]
